FAERS Safety Report 7327877-4 (Version None)
Quarter: 2011Q1

REPORT INFORMATION
  Report Type: 
  Country: None (occurrence: None)
  Receive Date: 20110224
  Receipt Date: 20110224
  Transmission Date: 20110831
  Serious: No
  Sender: FDA-Public Use
  Company Number: None

PATIENT
  Age: 64 Year
  Sex: Male

DRUGS (2)
  1. AUGMENTIN '125' [Suspect]
     Dates: start: 20090429, end: 20090601
  2. LEVAQUIN [Suspect]
     Dates: start: 20090126, end: 20090215

REACTIONS (1)
  - HEPATITIS CHOLESTATIC [None]
